FAERS Safety Report 5805211-6 (Version None)
Quarter: 2008Q3

REPORT INFORMATION
  Report Type: 
  Country: None (occurrence: None)
  Receive Date: 20080707
  Receipt Date: 20080318
  Transmission Date: 20090109
  Serious: No
  Sender: FDA-Public Use
  Company Number: ADE# 08-037

PATIENT
  Age: 57 Year
  Sex: Male
  Weight: 79.3795 kg

DRUGS (7)
  1. TRAMADOL HCL + ACETAMINOPHEN TABLETS, 37.5 MG/325 MG [Suspect]
     Indication: PAIN
     Dosage: 2 TABLETS 4XDAILY
     Dates: start: 20070101
  2. ATIVAN [Concomitant]
  3. LEXAPRO [Concomitant]
  4. CARDURA [Concomitant]
  5. FOLIC ACID [Concomitant]
  6. KLONOPIN [Concomitant]
  7. LYRICA [Concomitant]

REACTIONS (1)
  - DRUG INEFFECTIVE [None]
